FAERS Safety Report 7587604-2 (Version None)
Quarter: 2011Q3

REPORT INFORMATION
  Report Type: 
  Country: None (occurrence: None)
  Receive Date: 20110704
  Receipt Date: 20110622
  Transmission Date: 20111222
  Serious: Yes (Hospitalization)
  Sender: FDA-Public Use
  Company Number: PHHY2011US44980

PATIENT
  Sex: Male
  Weight: 76.6 kg

DRUGS (2)
  1. AMOXICILLIN [Concomitant]
  2. EXJADE [Suspect]
     Indication: SICKLE CELL ANAEMIA
     Dosage: 2000 MG, QD
     Route: 048

REACTIONS (3)
  - PYREXIA [None]
  - STREPTOCOCCUS TEST POSITIVE [None]
  - OROPHARYNGEAL PAIN [None]
